FAERS Safety Report 8343577 (Version 4)
Quarter: 2025Q4

REPORT INFORMATION
  Report Type: Spontaneous
  Country: EU (occurrence: EU)
  Receive Date: 20120119
  Receipt Date: 20251028
  Transmission Date: 20260117
  Serious: Yes (Other)
  Sender: ROCHE
  Company Number: EU-ROCHE-1031665

PATIENT
  Sex: Male

DRUGS (3)
  1. TRASTUZUMAB [Suspect]
     Active Substance: TRASTUZUMAB
     Indication: Breast cancer
     Route: 064
  2. DOCETAXEL [Concomitant]
     Active Substance: DOCETAXEL
     Route: 064
  3. CARBOPLATIN [Concomitant]
     Active Substance: CARBOPLATIN
     Route: 064

REACTIONS (4)
  - Foetal exposure during pregnancy [Unknown]
  - Renal failure [Recovered/Resolved]
  - Foetal growth restriction [Unknown]
  - Off label use [Unknown]
